FAERS Safety Report 9783082 (Version 1)
Quarter: 2013Q4

REPORT INFORMATION
  Report Type: Spontaneous
  Country: US (occurrence: None)
  Receive Date: 20131223
  Receipt Date: 20131223
  Transmission Date: 20140711
  Serious: No
  Sender: FDA-Public Use
  Company Number: EUS-2011-00792

PATIENT
  Age: 10 Year
  Sex: Male

DRUGS (3)
  1. ERWINASE (ASPARAGINASE) [Suspect]
     Indication: ACUTE LYMPHOCYTIC LEUKAEMIA
     Route: 042
     Dates: start: 20110811, end: 20110811
  2. ONDANSETRON HCL (ONDANSETRON) (ONDANSETRON) [Concomitant]
  3. SODIUM CHLORIDE [Concomitant]

REACTIONS (6)
  - Decreased appetite [None]
  - Fatigue [None]
  - Peripheral sensory neuropathy [None]
  - Dizziness [None]
  - Nausea [None]
  - Vomiting [None]
